FAERS Safety Report 5307038-0 (Version None)
Quarter: 2007Q2

REPORT INFORMATION
  Report Type: 
  Country: None (occurrence: None)
  Receive Date: 20070420
  Receipt Date: 20070420
  Transmission Date: 20071010
  Serious: Yes (Other)
  Sender: FDA-Public Use
  Company Number: None

PATIENT
  Sex: Male
  Weight: 85.2762 kg

DRUGS (24)
  1. HYDROXYCHLOROQUINE [Suspect]
     Indication: RHEUMATOID ARTHRITIS
     Dosage: 200MG 2 Q D
     Dates: start: 20000101
  2. HUMIRA [Concomitant]
  3. PREDNISONE TAB [Concomitant]
  4. CELEBREX [Concomitant]
  5. ACTONEL [Concomitant]
  6. AMITRIPTYLINE HCL [Concomitant]
  7. NEURONTIN [Concomitant]
  8. AMBIEN [Concomitant]
  9. BACLOFEN [Concomitant]
  10. LIDADERM PATCH [Concomitant]
  11. LOPID [Concomitant]
  12. PROTONIX [Concomitant]
  13. LIPITOR [Concomitant]
  14. ZYRTEC [Concomitant]
  15. LASIX [Concomitant]
  16. ATENOLOL [Concomitant]
  17. VERAPAMIL [Concomitant]
  18. VITAMIN D [Concomitant]
  19. HYDROCODONE [Concomitant]
  20. SINGULAIR [Concomitant]
  21. ADVAIR DISKUS 100/50 [Concomitant]
  22. SPIRIVA [Concomitant]
  23. ALBUTEROL [Concomitant]
  24. ZOMIG [Concomitant]

REACTIONS (2)
  - COLOUR VISION TESTS ABNORMAL [None]
  - RETINAL FUNCTION TEST ABNORMAL [None]
